FAERS Safety Report 5869601-8 (Version None)
Quarter: 2008Q3

REPORT INFORMATION
  Report Type: 
  Country: None (occurrence: None)
  Receive Date: 20080904
  Receipt Date: 20080123
  Transmission Date: 20090109
  Serious: No
  Sender: FDA-Public Use
  Company Number: US-KINGPHARMUSA00001-K200800130

PATIENT

DRUGS (4)
  1. CYTOMEL [Suspect]
     Indication: TRI-IODOTHYRONINE DECREASED
     Dosage: 25 MCG, QD
     Dates: start: 20080121, end: 20080124
  2. LEVOXYL [Suspect]
     Indication: AUTOIMMUNE THYROIDITIS
     Dosage: 112 MCG, QD
  3. ESTROGEN NOS [Concomitant]
     Indication: MENOPAUSE
  4. HYDROCORTISONE [Concomitant]

REACTIONS (6)
  - CHEST DISCOMFORT [None]
  - FREQUENT BOWEL MOVEMENTS [None]
  - INSOMNIA [None]
  - PALPITATIONS [None]
  - PRURITUS [None]
  - TRI-IODOTHYRONINE DECREASED [None]
